FAERS Safety Report 9915165 (Version 2)
Quarter: 2014Q2

REPORT INFORMATION
  Report Type: Report from Study
  Country: ES (occurrence: ES)
  Receive Date: 20140220
  Receipt Date: 20140423
  Transmission Date: 20141212
  Serious: Yes (Life-Threatening, Other)
  Sender: FDA-Public Use
  Company Number: ES-ASTRAZENECA-2014SE10769

PATIENT
  Age: 64 Year
  Sex: Female

DRUGS (8)
  1. STUDY PROCEDURE [Suspect]
     Indication: ACUTE CORONARY SYNDROME
     Route: 065
  2. BRILINTA [Suspect]
     Indication: ACUTE CORONARY SYNDROME
     Route: 048
     Dates: start: 20131108
  3. ASPIRIN [Suspect]
     Indication: ACUTE CORONARY SYNDROME
     Route: 048
     Dates: start: 20131108
  4. TENOLOL [Concomitant]
  5. MANIDIPINO [Concomitant]
  6. LORAZEPAM [Concomitant]
  7. LOSARTAN [Concomitant]
  8. OMEPRAZOL [Concomitant]

REACTIONS (2)
  - Drug ineffective [Unknown]
  - Acute myocardial infarction [Recovered/Resolved]
